FAERS Safety Report 13032899 (Version 1)
Quarter: 2016Q4

REPORT INFORMATION
  Report Type: Spontaneous
  Country: US (occurrence: US)
  Receive Date: 20161215
  Receipt Date: 20161215
  Transmission Date: 20170207
  Serious: No
  Sender: FDA-Public Use
  Company Number: US-BION-20160473

PATIENT
  Age: 55 Year
  Sex: Female
  Weight: 54.43 kg

DRUGS (5)
  1. HYDROCOTRISOL [Concomitant]
     Dosage: 1 DF BD
  2. PROGESTERONE. [Suspect]
     Active Substance: PROGESTERONE
     Indication: MENOPAUSE
     Dosage: 1 DF
     Dates: start: 20160502
  3. VALACYCLOVIR [Concomitant]
     Active Substance: VALACYCLOVIR HYDROCHLORIDE
  4. FLUDROCORT [Concomitant]
     Dosage: 1 DF BD
  5. LORAZEPAM. [Concomitant]
     Active Substance: LORAZEPAM
     Dosage: 1 DF QD

REACTIONS (2)
  - Fatigue [Unknown]
  - Somnolence [Unknown]
